FAERS Safety Report 6080288-4 (Version None)
Quarter: 2009Q1

REPORT INFORMATION
  Report Type: 
  Country: None (occurrence: None)
  Receive Date: 20090217
  Receipt Date: 20090205
  Transmission Date: 20090719
  Serious: Yes (Hospitalization)
  Sender: FDA-Public Use
  Company Number: US-BAXTER-2009BH002159

PATIENT
  Age: 64 Year
  Sex: Female

DRUGS (4)
  1. DIANEAL [Suspect]
     Indication: RENAL FAILURE CHRONIC
     Route: 033
     Dates: start: 20071001
  2. DIANEAL [Suspect]
     Route: 033
     Dates: start: 20090101, end: 20090204
  3. DIANEAL [Suspect]
     Indication: RENAL FAILURE CHRONIC
     Route: 033
     Dates: start: 20071001
  4. DIANEAL [Suspect]
     Route: 033
     Dates: start: 20090101, end: 20090204

REACTIONS (2)
  - COLITIS ULCERATIVE [None]
  - DISCOMFORT [None]
